FAERS Safety Report 17277824 (Version 1)
Quarter: 2020Q1

REPORT INFORMATION
  Report Type: Spontaneous
  Country: US (occurrence: US)
  Receive Date: 20200116
  Receipt Date: 20200116
  Transmission Date: 20200409
  Serious: Yes (Death, Hospitalization)
  Sender: FDA-Public Use
  Company Number: US-PFIZER INC-2020018434

PATIENT
  Age: 57 Year
  Sex: Male

DRUGS (5)
  1. METAXALONE. [Suspect]
     Active Substance: METAXALONE
     Dosage: UNK (INGESTION)
     Route: 048
  2. DARUNAVIR [Suspect]
     Active Substance: DARUNAVIR
     Dosage: UNK (INGESTION)
     Route: 048
  3. GABAPENTIN. [Suspect]
     Active Substance: GABAPENTIN
     Dosage: UNK (INGESTION)
     Route: 048
  4. RITONAVIR. [Suspect]
     Active Substance: RITONAVIR
     Dosage: UNK (INGESTION)
     Route: 048
  5. EMTRICITABINE/TENOFOVIR DISOPROXIL [Suspect]
     Active Substance: EMTRICITABINE\TENOFOVIR DISOPROXIL
     Dosage: UNK (INGESTION)
     Route: 048

REACTIONS (2)
  - Accidental exposure to product [Fatal]
  - Death [Fatal]

NARRATIVE: CASE EVENT DATE: 2018
